FAERS Safety Report 14015365 (Version 2)
Quarter: 2017Q3

REPORT INFORMATION
  Report Type: Spontaneous
  Country: US (occurrence: US)
  Receive Date: 20170927
  Receipt Date: 20170928
  Transmission Date: 20171128
  Serious: Yes (Other)
  Sender: FDA-Public Use
  Company Number: US-PFIZER INC-2017415278

PATIENT
  Age: 30 Year
  Sex: Female

DRUGS (9)
  1. LYRICA [Suspect]
     Active Substance: PREGABALIN
     Indication: TRIGEMINAL NEURALGIA
     Dosage: 200 MG, 2X/DAY
  2. LYRICA [Suspect]
     Active Substance: PREGABALIN
     Dosage: 200MG THREE TIMES A DAY WITH AN EXTRA PRESCRIPTION OF 50MG
  3. TRILEPTAL [Concomitant]
     Active Substance: OXCARBAZEPINE
     Dosage: 300 MG, 1X/DAY IN THE AFTERNOON
  4. LYRICA [Suspect]
     Active Substance: PREGABALIN
     Dosage: 200MG TWICE A DAY ALSO TAKING A 50MG DOSE IN THE AFTERNOON
  5. TRILEPTAL [Concomitant]
     Active Substance: OXCARBAZEPINE
     Indication: TRIGEMINAL NEURALGIA
     Dosage: 600 MG, 2X/DAY
  6. LYRICA [Suspect]
     Active Substance: PREGABALIN
     Dosage: 200MG ONCE A DAY AND 50MG ONCE A DAY WITH THE OPTION TO TAKE AN EXTRA 200MG OR 50MG DOSE IF NEEDED
  7. BACLOFEN. [Concomitant]
     Active Substance: BACLOFEN
     Indication: TRIGEMINAL NEURALGIA
     Dosage: 10 MG, 4X/DAY
  8. TIZANIDINE. [Concomitant]
     Active Substance: TIZANIDINE
     Indication: MUSCULOSKELETAL DISCOMFORT
     Dosage: 4 MG, 1X/DAY
  9. CEVIMELINE. [Concomitant]
     Active Substance: CEVIMELINE
     Indication: DRY EYE
     Dosage: 30 MG, 2X/DAY

REACTIONS (6)
  - Overdose [Unknown]
  - Intentional product use issue [Unknown]
  - Cranial nerve disorder [Unknown]
  - Condition aggravated [Not Recovered/Not Resolved]
  - Nerve compression [Unknown]
  - Pain [Not Recovered/Not Resolved]

NARRATIVE: CASE EVENT DATE: 2017
